FAERS Safety Report 23417355 (Version 1)
Quarter: 2024Q1

REPORT INFORMATION
  Report Type: Spontaneous
  Country: US (occurrence: None)
  Receive Date: 20240117
  Receipt Date: 20240117
  Transmission Date: 20240410
  Serious: No
  Sender: FDA-Public Use
  Company Number: None

PATIENT

DRUGS (1)
  1. MUCUS RELIEF DM EXTENDED RELEASE CAPLETS [Suspect]
     Active Substance: DEXTROMETHORPHAN HYDROBROMIDE\GUAIFENESIN
     Route: 048

REACTIONS (3)
  - Product lot number issue [None]
  - Product label confusion [None]
  - Circumstance or information capable of leading to medication error [None]
